FAERS Safety Report 8127269-4 (Version None)
Quarter: 2011Q4

REPORT INFORMATION
  Report Type: 
  Country: None (occurrence: None)
  Receive Date: 20111227
  Receipt Date: 20110922
  Transmission Date: 20120403
  Serious: No
  Sender: FDA-Public Use
  Company Number: PHHY2011US28099

PATIENT
  Age: 40 Year
  Sex: Male

DRUGS (1)
  1. GILENYA [Suspect]
     Indication: MULTIPLE SCLEROSIS
     Dosage: 0.5 MG, DAILY, ORAL
     Route: 048
     Dates: start: 20110314

REACTIONS (6)
  - INFLUENZA [None]
  - MALAISE [None]
  - WEIGHT INCREASED [None]
  - INCREASED APPETITE [None]
  - SLEEP DISORDER [None]
  - BRONCHITIS [None]
